FAERS Safety Report 6372590-3 (Version None)
Quarter: 2009Q3

REPORT INFORMATION
  Report Type: 
  Country: None (occurrence: None)
  Receive Date: 20090924
  Receipt Date: 20090325
  Transmission Date: 20100115
  Serious: No
  Sender: FDA-Public Use
  Company Number: US-ASTRAZENECA-2008UW18992

PATIENT
  Age: 401 Month
  Sex: Female
  Weight: 50.3 kg

DRUGS (4)
  1. SEROQUEL [Suspect]
     Indication: BIPOLAR DISORDER
     Dosage: 1200MG BID PM; REDUCED TO 1000MG BID PM
     Route: 048
     Dates: start: 20041201, end: 20060601
  2. ABILIFY [Concomitant]
     Dates: start: 20031201, end: 20031201
  3. GEODON [Concomitant]
     Dates: start: 20060601, end: 20070101
  4. DEPAKOTE [Concomitant]
     Dates: start: 20020601

REACTIONS (3)
  - DEPRESSION [None]
  - HEPATIC ENZYME INCREASED [None]
  - TYPE 1 DIABETES MELLITUS [None]
